FAERS Safety Report 7580196-3 (Version None)
Quarter: 2011Q2

REPORT INFORMATION
  Report Type: 
  Country: None (occurrence: None)
  Receive Date: 20110629
  Receipt Date: 20110617
  Transmission Date: 20111010
  Serious: Yes (Hospitalization)
  Sender: FDA-Public Use
  Company Number: US-BAYER-201038472NA

PATIENT
  Age: 31 Year
  Sex: Female
  Weight: 91 kg

DRUGS (22)
  1. YASMIN [Suspect]
     Indication: PRODUCT USED FOR UNKNOWN INDICATION
     Dosage: UNK
     Route: 048
     Dates: start: 20020801, end: 20070101
  2. LEVOXYL [Concomitant]
  3. IMITREX [Concomitant]
     Dosage: UNK
     Dates: start: 20000101, end: 20100101
  4. LORA TAB [Concomitant]
  5. RELPAX [Concomitant]
     Dosage: UNK
     Dates: start: 20000101, end: 20100101
  6. NORCO [Concomitant]
     Dosage: UNK
     Dates: start: 20000101, end: 20100101
  7. ZETIA [Concomitant]
  8. XANAX [Concomitant]
     Dosage: UNK
     Dates: start: 20000101, end: 20100101
  9. PREVACID [Concomitant]
  10. YAZ [Suspect]
     Dosage: UNK
     Dates: start: 20020101, end: 20070101
  11. MAXALT [Concomitant]
     Dosage: UNK
     Dates: start: 20000101, end: 20100101
  12. VALIUM [Concomitant]
     Dosage: UNK
     Dates: start: 20000101, end: 20100101
  13. LEVOTHYROXINE SODIUM [Concomitant]
     Dosage: UNK
     Dates: start: 20000101, end: 20100101
  14. CRESTOR [Concomitant]
  15. CYMBALTA [Concomitant]
  16. TOPAMAX [Concomitant]
     Dosage: UNK
     Dates: start: 20000101, end: 20100101
  17. GABAPENTIN [Concomitant]
     Dosage: UNK
     Dates: start: 20000101, end: 20100101
  18. ADVIL LIQUI-GELS [Concomitant]
     Dosage: UNK
     Dates: start: 20000101, end: 20100101
  19. SOMA [Concomitant]
     Dosage: UNK
     Dates: start: 20000101, end: 20100101
  20. NAPROXEN (ALEVE) [Concomitant]
     Dosage: UNK
     Dates: start: 20000101, end: 20100101
  21. PROZAC [Concomitant]
  22. MIRENA [Concomitant]
     Dosage: UNK
     Dates: start: 20040226, end: 20050915

REACTIONS (2)
  - DEEP VEIN THROMBOSIS [None]
  - PULMONARY EMBOLISM [None]
